FAERS Safety Report 4638541-4 (Version None)
Quarter: 2005Q2

REPORT INFORMATION
  Report Type: 
  Country: None (occurrence: None)
  Receive Date: 20050418
  Receipt Date: 20050418
  Transmission Date: 20051028
  Serious: Yes (Hospitalization)
  Sender: FDA-Public Use
  Company Number: None

PATIENT
  Age: 27 Year
  Sex: Female
  Weight: 76.6579 kg

DRUGS (1)
  1. DURAGESIC-100 [Suspect]

REACTIONS (1)
  - DRUG HYPERSENSITIVITY [None]
